FAERS Safety Report 9266793 (Version 1)
Quarter: 2013Q2

REPORT INFORMATION
  Report Type: Spontaneous
  Country: US (occurrence: US)
  Receive Date: 20130502
  Receipt Date: 20130502
  Transmission Date: 20140414
  Serious: Yes (Hospitalization)
  Sender: FDA-Public Use
  Company Number: US-BAYER-2013-053296

PATIENT
  Age: 31 Year
  Sex: Female
  Weight: 90.57 kg

DRUGS (6)
  1. GIANVI [Suspect]
  2. YAZ [Suspect]
  3. AZITHROMYCIN [Concomitant]
     Dosage: 200 MG / 5 ML
  4. ZAMICET SOLUTION [Concomitant]
  5. METHYLPREDNISOLONE [Concomitant]
     Dosage: 4 UNK, UNK
  6. ONDANSETRON [Concomitant]
     Dosage: 4 MG, UNK

REACTIONS (7)
  - Pulmonary embolism [Recovered/Resolved]
  - Pulmonary infarction [None]
  - Deep vein thrombosis [None]
  - Deep vein thrombosis [None]
  - Thrombophlebitis superficial [Not Recovered/Not Resolved]
  - Chest discomfort [Recovered/Resolved]
  - Chest pain [Recovered/Resolved]
